FAERS Safety Report 6829636-5 (Version None)
Quarter: 2010Q3

REPORT INFORMATION
  Report Type: 
  Country: None (occurrence: None)
  Receive Date: 20100709
  Receipt Date: 20070512
  Transmission Date: 20110219
  Serious: No
  Sender: FDA-Public Use
  Company Number: US-PFIZER INC-2007019280

PATIENT
  Sex: Male
  Weight: 83.46 kg

DRUGS (20)
  1. CHANTIX [Suspect]
     Indication: SMOKING CESSATION THERAPY
     Dates: start: 20070228
  2. VICODIN [Suspect]
     Indication: PAIN
     Dosage: 5/500
     Route: 048
  3. DICLOFENAC SODIUM [Concomitant]
  4. QUININE [Concomitant]
     Indication: MUSCLE SPASMS
     Route: 048
  5. ACETYLSALICYLIC ACID [Concomitant]
  6. DIGOXIN [Concomitant]
  7. COREG [Concomitant]
  8. LISINOPRIL [Concomitant]
  9. VALPROIC ACID [Concomitant]
  10. TEMAZEPAM [Concomitant]
     Route: 048
  11. RISPERDAL [Concomitant]
     Route: 048
  12. ALBUTEROL [Concomitant]
     Route: 055
  13. TAMSULOSIN HYDROCHLORIDE [Concomitant]
     Indication: PROSTATIC DISORDER
  14. VIAGRA [Concomitant]
  15. ALPRAZOLAM [Concomitant]
  16. FUROSEMIDE [Concomitant]
     Indication: SWELLING
  17. POTASSIUM CHLORIDE [Concomitant]
     Indication: SWELLING
  18. ALL OTHER THERAPEUTIC PRODUCTS [Concomitant]
  19. NICOTINE [Concomitant]
  20. ALL OTHER THERAPEUTIC PRODUCTS [Concomitant]

REACTIONS (12)
  - ABDOMINAL PAIN UPPER [None]
  - CHEST PAIN [None]
  - CONSTIPATION [None]
  - DYSGEUSIA [None]
  - FLATULENCE [None]
  - INCREASED APPETITE [None]
  - INSOMNIA [None]
  - IRRITABILITY [None]
  - PAIN [None]
  - PARAESTHESIA [None]
  - SOMNOLENCE [None]
  - WEIGHT INCREASED [None]
